FAERS Safety Report 5008344-X (Version None)
Quarter: 2006Q2

REPORT INFORMATION
  Report Type: 
  Country: None (occurrence: None)
  Receive Date: 20060523
  Receipt Date: 20060517
  Transmission Date: 20061013
  Serious: Yes (Death, Hospitalization)
  Sender: FDA-Public Use
  Company Number: FR-AVENTIS-200611804FR

PATIENT
  Age: 69 Year
  Sex: Male

DRUGS (4)
  1. RIFADIN [Suspect]
     Indication: SEPTIC ARTHRITIS STAPHYLOCOCCAL
     Route: 042
     Dates: start: 20060131, end: 20060206
  2. RIFADIN [Suspect]
     Dates: start: 20060216, end: 20060222
  3. SULFATE DE GENTAMYCINE [Suspect]
     Indication: SEPTIC ARTHRITIS STAPHYLOCOCCAL
     Route: 042
     Dates: start: 20060129, end: 20060206
  4. CEFAZOLINE SODIQUE [Concomitant]
     Indication: SEPTIC ARTHRITIS STAPHYLOCOCCAL
     Route: 042
     Dates: start: 20060201, end: 20060213

REACTIONS (4)
  - COAGULATION FACTOR V LEVEL DECREASED [None]
  - HEPATIC CIRRHOSIS [None]
  - HYPERBILIRUBINAEMIA [None]
  - RENAL FAILURE ACUTE [None]
